FAERS Safety Report 22077737 (Version 2)
Quarter: 2023Q1

REPORT INFORMATION
  Report Type: Spontaneous
  Country: RU (occurrence: RU)
  Receive Date: 20230309
  Receipt Date: 20230327
  Transmission Date: 20230417
  Serious: Yes (Other)
  Sender: FDA-Public Use
  Company Number: RU-AstraZeneca-2023A049667

PATIENT
  Sex: Female

DRUGS (1)
  1. METOPROLOL SUCCINATE [Suspect]
     Active Substance: METOPROLOL SUCCINATE
     Indication: Product used for unknown indication
     Dosage: NOT PROVIDED.
     Route: 048

REACTIONS (6)
  - Pharyngeal oedema [Unknown]
  - COVID-19 [Unknown]
  - Asthma [Unknown]
  - Blood pressure diastolic increased [Unknown]
  - Therapeutic response unexpected [Recovered/Resolved]
  - Headache [Unknown]
